FAERS Safety Report 9067711 (Version 1)
Quarter: 2013Q1

REPORT INFORMATION
  Report Type: Other
  Country: SE (occurrence: SE)
  Receive Date: 20130128
  Receipt Date: 20130128
  Transmission Date: 20140127
  Serious: Yes (Other)
  Sender: FDA-Public Use
  Company Number: SE-ENDO PHARMACEUTICALS INC.-FORT20130020

PATIENT
  Age: 81 Year
  Sex: Male

DRUGS (1)
  1. FORTESTA [Suspect]
     Indication: HYPERPROLACTINAEMIA
     Route: 062
     Dates: start: 20120720, end: 20121026

REACTIONS (2)
  - Diarrhoea [Recovered/Resolved]
  - Off label use [Recovered/Resolved]
